APPROVED DRUG PRODUCT: NITROFURANTOIN
Active Ingredient: NITROFURANTOIN, MACROCRYSTALLINE
Strength: 50MG
Dosage Form/Route: CAPSULE;ORAL
Application: A073671 | Product #001 | TE Code: AB
Applicant: IMPAX LABORATORIES INC
Approved: Jan 28, 1993 | RLD: No | RS: No | Type: RX